FAERS Safety Report 8900765 (Version 6)
Quarter: 2014Q1

REPORT INFORMATION
  Report Type: Report from Study
  Country: CA (occurrence: CA)
  Receive Date: 20121109
  Receipt Date: 20140311
  Transmission Date: 20141002
  Serious: Yes (Other)
  Sender: FDA-Public Use
  Company Number: PHHY2009CA46015

PATIENT
  Age: 53 Year
  Sex: Female
  Weight: 47.62 kg

DRUGS (4)
  1. SANDOSTATIN LAR [Suspect]
     Indication: ACROMEGALY
     Dosage: 20 MG, QMO
     Route: 030
     Dates: start: 20040101
  2. SANDOSTATIN LAR [Suspect]
     Dosage: 20 MG, QMO
     Route: 030
     Dates: start: 20100309
  3. SANDOSTATIN LAR [Suspect]
     Dosage: 20 MG, QMO
     Route: 030
     Dates: start: 20121211
  4. SANDOSTATIN LAR [Suspect]
     Dosage: 20 MG, EVERY 4 WEEKS
     Route: 030

REACTIONS (9)
  - Blood pressure diastolic decreased [Unknown]
  - Hyperglycaemia [Unknown]
  - Blood pressure systolic increased [Unknown]
  - Injection site mass [Recovered/Resolved]
  - Myalgia [Unknown]
  - Sensory disturbance [Unknown]
  - Injection site pain [Not Recovered/Not Resolved]
  - Injection site discomfort [Not Recovered/Not Resolved]
  - Diarrhoea [Unknown]
